FAERS Safety Report 22834303 (Version 2)
Quarter: 2024Q1

REPORT INFORMATION
  Report Type: Report from Study
  Country: MX (occurrence: MX)
  Receive Date: 20230817
  Receipt Date: 20240308
  Transmission Date: 20240410
  Serious: Yes (Hospitalization)
  Sender: FDA-Public Use
  Company Number: MX-002147023-NVSC2023MX178696

PATIENT
  Age: 80 Year
  Sex: Female

DRUGS (5)
  1. KISQALI [Suspect]
     Active Substance: RIBOCICLIB
     Indication: Breast cancer
     Dosage: 300 MG, TID (3 OF 300 MG EVERY 24 HOURS) (FOR 21 DAYS)
     Route: 048
     Dates: start: 20230719
  2. LETROZOLE [Suspect]
     Active Substance: LETROZOLE
     Indication: Breast cancer
     Dosage: 2.5 MG, Q24H (1 OF 2.5 MG, EVERY 24 HOURS) (FOR 30 DAYS)
     Route: 065
     Dates: start: 20230719
  3. NPH INSULIN [Concomitant]
     Active Substance: INSULIN BEEF
     Indication: Type 2 diabetes mellitus
     Dosage: 300 IU, QD (PM)
     Route: 065
  4. LOSARTAN [Concomitant]
     Active Substance: LOSARTAN
     Indication: Hypertension
     Dosage: 50 MG, Q12H
     Route: 065
  5. CARBIDOPA\LEVODOPA [Concomitant]
     Active Substance: CARBIDOPA\LEVODOPA
     Indication: Parkinson^s disease
     Dosage: 1/2 TABLET, Q12H
     Route: 065

REACTIONS (20)
  - Neutropenia [Recovering/Resolving]
  - Breast ulceration [Unknown]
  - Normochromic normocytic anaemia [Unknown]
  - Communication disorder [Unknown]
  - Exposure to extreme temperature [Unknown]
  - Asthenia [Unknown]
  - Thrombocytopenia [Unknown]
  - Erythema [Unknown]
  - Pyrexia [Unknown]
  - Lymphocyte count abnormal [Unknown]
  - Platelet count abnormal [Unknown]
  - White blood cell disorder [Unknown]
  - Haematocrit abnormal [Unknown]
  - Haemoglobin abnormal [Unknown]
  - Blood sodium abnormal [Unknown]
  - Blood calcium abnormal [Unknown]
  - Globulin abnormal [Unknown]
  - Blood albumin abnormal [Unknown]
  - Blood glucose abnormal [Unknown]
  - Protein total abnormal [Unknown]

NARRATIVE: CASE EVENT DATE: 20230804
